FAERS Safety Report 25792787 (Version 2)
Quarter: 2025Q4

REPORT INFORMATION
  Report Type: Report from Study
  Country: US (occurrence: None)
  Receive Date: 20250911
  Receipt Date: 20251228
  Transmission Date: 20260118
  Serious: Yes (Other)
  Sender: UCB
  Company Number: US-UCBSA-2025018404

PATIENT
  Age: 58 Year

DRUGS (1)
  1. BIMEKIZUMAB [Suspect]
     Active Substance: BIMEKIZUMAB
     Indication: Ankylosing spondylitis
     Dosage: 160 MILLIGRAM, EV 4 WEEKS

REACTIONS (7)
  - Ankylosing spondylitis [Unknown]
  - Cardiac operation [Unknown]
  - Surgery [Unknown]
  - Fall [Unknown]
  - Gait disturbance [Unknown]
  - Tendonitis [Unknown]
  - Therapeutic response shortened [Unknown]
